FAERS Safety Report 9436834 (Version 1)
Quarter: 2013Q3

REPORT INFORMATION
  Report Type: Spontaneous
  Country: US (occurrence: US)
  Receive Date: 20130802
  Receipt Date: 20130802
  Transmission Date: 20140515
  Serious: No
  Sender: FDA-Public Use
  Company Number: US-PFIZER INC-2013222384

PATIENT
  Age: 62 Year
  Sex: Female
  Weight: 52.61 kg

DRUGS (1)
  1. CELEBREX [Suspect]
     Indication: ARTHROPATHY
     Dosage: 200 MG, 1X/DAY
     Dates: start: 201307

REACTIONS (1)
  - Fluid retention [Not Recovered/Not Resolved]
